FAERS Safety Report 4991788-X (Version None)
Quarter: 2006Q2

REPORT INFORMATION
  Report Type: 
  Country: None (occurrence: None)
  Receive Date: 20060504
  Receipt Date: 20060426
  Transmission Date: 20061013
  Serious: Yes (Life-Threatening, Hospitalization)
  Sender: FDA-Public Use
  Company Number: GB-AVENTIS-200614521GDDC

PATIENT
  Age: 72 Year
  Sex: Female

DRUGS (8)
  1. FEXOFENADINE HCL [Suspect]
     Indication: RASH
     Route: 048
     Dates: start: 20060310, end: 20060330
  2. ATENOLOL [Concomitant]
     Indication: HYPERTENSION
     Route: 048
  3. FUROSEMIDE [Concomitant]
     Indication: HYPERTENSION
     Route: 048
  4. MOXONIDINE [Concomitant]
     Route: 048
  5. METFORMIN [Concomitant]
     Indication: DIABETES MELLITUS NON-INSULIN-DEPENDENT
     Route: 048
  6. DOSULEPIN [Concomitant]
     Indication: DEPRESSION
     Route: 048
  7. CANDESARTAN [Concomitant]
     Indication: HYPERTENSION
  8. ROSIGLITAZONE [Concomitant]
     Indication: DIABETES MELLITUS NON-INSULIN-DEPENDENT

REACTIONS (2)
  - ELECTROCARDIOGRAM QT PROLONGED [None]
  - VENTRICULAR FIBRILLATION [None]
